FAERS Safety Report 5137086-5 (Version None)
Quarter: 2006Q4

REPORT INFORMATION
  Report Type: 
  Country: None (occurrence: None)
  Receive Date: 20061030
  Receipt Date: 20061024
  Transmission Date: 20070319
  Serious: Yes (Hospitalization)
  Sender: FDA-Public Use
  Company Number: FR-AVENTIS-200613726FR

PATIENT
  Age: 83 Year
  Sex: Male

DRUGS (4)
  1. LASILIX                            /00032601/ [Suspect]
  2. IRBESARTAN [Concomitant]
  3. CLOPIDOGREL BISULFATE [Concomitant]
     Dates: start: 20040625
  4. ASPIRIN [Concomitant]
     Dates: start: 20040625

REACTIONS (2)
  - HYPOKALAEMIA [None]
  - LOSS OF CONSCIOUSNESS [None]
